FAERS Safety Report 13188008 (Version 1)
Quarter: 2017Q1

REPORT INFORMATION
  Report Type: Spontaneous
  Country: US (occurrence: US)
  Receive Date: 20170206
  Receipt Date: 20170206
  Transmission Date: 20170428
  Serious: Yes (Other)
  Sender: FDA-Public Use
  Company Number: US-AUROBINDO-AUR-APL-2017-29197

PATIENT
  Age: 56 Year
  Sex: Female

DRUGS (1)
  1. LIDOCAINE. [Suspect]
     Active Substance: LIDOCAINE
     Indication: NERVE BLOCK
     Dosage: 3 ML, TEST DOSE (1.5%)
     Route: 065

REACTIONS (3)
  - Injection site extravasation [Unknown]
  - Neuromuscular blockade [Recovered/Resolved]
  - Hypotension [Recovered/Resolved]
